FAERS Safety Report 9604927 (Version 1)
Quarter: 2013Q4

REPORT INFORMATION
  Report Type: Spontaneous
  Country: IT (occurrence: IT)
  Receive Date: 20131008
  Receipt Date: 20131008
  Transmission Date: 20140711
  Serious: Yes (Life-Threatening, Hospitalization, Other)
  Sender: FDA-Public Use
  Company Number: IT-TAKEDA-2013TEU000865

PATIENT
  Sex: 0

DRUGS (3)
  1. COMPETACT [Suspect]
     Indication: TYPE 2 DIABETES MELLITUS
     Dosage: 3 DF, QD
     Route: 048
     Dates: start: 2012
  2. COMPETACT [Suspect]
     Dosage: 2 DF, QD
     Route: 048
  3. NORVASC [Concomitant]
     Indication: HYPERTENSION

REACTIONS (7)
  - Lactic acidosis [Recovered/Resolved with Sequelae]
  - Renal failure [Recovered/Resolved with Sequelae]
  - Hypercreatininaemia [Recovered/Resolved with Sequelae]
  - Abdominal pain [Recovered/Resolved with Sequelae]
  - Cystitis [Recovered/Resolved with Sequelae]
  - Pyrexia [Recovered/Resolved with Sequelae]
  - Diarrhoea [Recovered/Resolved with Sequelae]
